FAERS Safety Report 9530273 (Version 1)
Quarter: 2013Q3

REPORT INFORMATION
  Report Type: Report from Study
  Country: US (occurrence: US)
  Receive Date: 20130917
  Receipt Date: 20130917
  Transmission Date: 20140515
  Serious: Yes (Hospitalization)
  Sender: FDA-Public Use
  Company Number: US-ROCHE-1273954

PATIENT
  Age: 58 Year
  Sex: Female
  Weight: 56.3 kg

DRUGS (2)
  1. CAPECITABINE [Suspect]
     Indication: BREAST CANCER METASTATIC
     Route: 065
  2. LAPATINIB DITOSYLATE [Suspect]
     Indication: BREAST CANCER METASTATIC
     Dosage: REPORTED AS TYKERB
     Route: 065

REACTIONS (1)
  - Renal failure acute [Not Recovered/Not Resolved]
